FAERS Safety Report 7821389-7 (Version None)
Quarter: 2011Q4

REPORT INFORMATION
  Report Type: 
  Country: None (occurrence: None)
  Receive Date: 20111018
  Receipt Date: 20110819
  Transmission Date: 20120403
  Serious: No
  Sender: FDA-Public Use
  Company Number: US-ASTRAZENECA-2011SE49917

PATIENT
  Age: 55 Year
  Weight: 68.9 kg

DRUGS (3)
  1. SYMBICORT [Suspect]
     Indication: CHRONIC OBSTRUCTIVE PULMONARY DISEASE
     Route: 055
  2. SYMBICORT [Suspect]
     Dosage: 80 MCG,TWO SPRAYS DAY AND NIGHT
     Route: 055
  3. SEVERAL MEDICATINS [Concomitant]

REACTIONS (6)
  - INCORRECT DOSE ADMINISTERED [None]
  - EMPHYSEMA [None]
  - CHRONIC OBSTRUCTIVE PULMONARY DISEASE [None]
  - WEIGHT DECREASED [None]
  - DRUG DISPENSING ERROR [None]
  - WRONG TECHNIQUE IN DRUG USAGE PROCESS [None]
